FAERS Safety Report 24077695 (Version 1)
Quarter: 2024Q3

REPORT INFORMATION
  Report Type: Spontaneous
  Country: RU (occurrence: RU)
  Receive Date: 20240711
  Receipt Date: 20240711
  Transmission Date: 20241017
  Serious: No
  Sender: PIERRE FABRE MEDICAMENT
  Company Number: RU-PFM-2023-03136

PATIENT
  Age: 21 Day
  Sex: Female

DRUGS (9)
  1. PROPRANOLOL [Suspect]
     Active Substance: PROPRANOLOL HYDROCHLORIDE
     Indication: Atrial tachycardia
     Dosage: 1-1.5 MG/KG/DAY IN 4 DOSES
     Route: 048
  2. PROPRANOLOL [Suspect]
     Active Substance: PROPRANOLOL HYDROCHLORIDE
     Indication: Off label use
  3. AMIODARONE [Concomitant]
     Active Substance: AMIODARONE
     Indication: Atrial tachycardia
     Dosage: 5-10 MG/KG
     Route: 042
  4. AMIODARONE [Concomitant]
     Active Substance: AMIODARONE
     Dosage: 5-15 ?G/KG/MIN, MAINTENANCE DOSE
     Route: 042
  5. AMIODARONE [Concomitant]
     Active Substance: AMIODARONE
     Dosage: 10 MG/KG/DAY 7-14 DAYS IN 2 DOSES, LOADING DOSE
     Route: 048
  6. AMIODARONE [Concomitant]
     Active Substance: AMIODARONE
     Dosage: 5 MG/KG/DAY IN 1 DOSE, MAINTENANCE DOSE
     Route: 048
  7. PROPAFENONE [Concomitant]
     Active Substance: PROPAFENONE
     Indication: Atrial tachycardia
     Dosage: 10-15 MG/KG/DAY IN 3 DOSES
     Route: 048
  8. DIGOXIN [Concomitant]
     Active Substance: DIGOXIN
     Indication: Atrial tachycardia
     Dosage: 10 ?G/KG/DAY IN 2 INJECTIONS
     Route: 042
  9. DIGOXIN [Concomitant]
     Active Substance: DIGOXIN
     Dosage: 10 ?G/KG/DAY IN 2 INJECTIONS
     Route: 048

REACTIONS (4)
  - Product use in unapproved indication [Unknown]
  - Inappropriate schedule of product administration [Unknown]
  - Product administered to patient of inappropriate age [Unknown]
  - Off label use [Unknown]
